FAERS Safety Report 6734259-2 (Version None)
Quarter: 2010Q2

REPORT INFORMATION
  Report Type: 
  Country: None (occurrence: None)
  Receive Date: 20100520
  Receipt Date: 20100517
  Transmission Date: 20101027
  Serious: Yes (Death, Other)
  Sender: FDA-Public Use
  Company Number: PHEH2009US18012

PATIENT
  Sex: Male
  Weight: 74.4 kg

DRUGS (4)
  1. AFINITOR [Suspect]
     Indication: METASTATIC RENAL CELL CARCINOMA
     Dosage: 10 MG, QD
     Route: 048
     Dates: start: 20091102
  2. LEVOTHYROXINE SODIUM [Concomitant]
     Indication: HYPOTHYROIDISM
     Dosage: 50 MG/DAY
     Dates: start: 20080101
  3. PRILOSEC [Concomitant]
     Dosage: 20 MG/DAY
  4. MULTI-VITAMINS [Concomitant]
     Dosage: 1 DF/DAY
     Route: 048

REACTIONS (5)
  - CEREBRAL HAEMORRHAGE [None]
  - HAEMORRHAGE INTRACRANIAL [None]
  - HEADACHE [None]
  - METASTASES TO LUNG [None]
  - UNRESPONSIVE TO STIMULI [None]
